FAERS Safety Report 8315808-X (Version None)
Quarter: 2012Q2

REPORT INFORMATION
  Report Type: 
  Country: None (occurrence: None)
  Receive Date: 20120427
  Receipt Date: 20120420
  Transmission Date: 20120825
  Serious: Yes (Other)
  Sender: FDA-Public Use
  Company Number: US-AMGEN-USASP2012025171

PATIENT
  Sex: Female

DRUGS (1)
  1. VECTIBIX [Suspect]
     Indication: RECTAL CANCER METASTATIC
     Dosage: UNK
     Dates: start: 20120101

REACTIONS (3)
  - LUNG NEOPLASM [None]
  - RASH [None]
  - GENERAL PHYSICAL HEALTH DETERIORATION [None]
